FAERS Safety Report 7026317-2 (Version None)
Quarter: 2010Q4

REPORT INFORMATION
  Report Type: 
  Country: None (occurrence: None)
  Receive Date: 20101004
  Receipt Date: 20100924
  Transmission Date: 20110411
  Serious: Yes (Other)
  Sender: FDA-Public Use
  Company Number: US-PFIZER INC-2010109620

PATIENT
  Sex: Female
  Weight: 55.782 kg

DRUGS (3)
  1. XALATAN [Suspect]
     Indication: INTRAOCULAR PRESSURE INCREASED
     Dosage: 1 DROP IN LEFT EYE ONCE DAILY
  2. XALATAN [Suspect]
     Indication: GLAUCOMA
  3. GABAPENTIN [Concomitant]
     Dosage: 300 MG, 2X/DAY

REACTIONS (11)
  - BLOOD CHOLESTEROL ABNORMAL [None]
  - CORNEAL DISORDER [None]
  - DYSPHONIA [None]
  - EYE DISORDER [None]
  - HERPES OPHTHALMIC [None]
  - INTRAOCULAR PRESSURE INCREASED [None]
  - MALAISE [None]
  - MEMORY IMPAIRMENT [None]
  - NERVOUSNESS [None]
  - OCULAR HYPERAEMIA [None]
  - SPEECH DISORDER [None]
